FAERS Safety Report 19006574 (Version 1)
Quarter: 2021Q1

REPORT INFORMATION
  Report Type: Spontaneous
  Country: US (occurrence: US)
  Receive Date: 20210314
  Receipt Date: 20210314
  Transmission Date: 20210420
  Serious: Yes (Death)
  Sender: FDA-Public Use
  Company Number: None

PATIENT
  Age: 76 Year
  Sex: Female

DRUGS (5)
  1. MINOXIDIL 2.5MG [Concomitant]
     Active Substance: MINOXIDIL
  2. PROCHLORPERAZINE 10MG [Concomitant]
     Dates: start: 20200929, end: 20201011
  3. OXYCODONE 10 MG [Concomitant]
  4. CAPECITABINE. [Suspect]
     Active Substance: CAPECITABINE
     Indication: ADENOCARCINOMA PANCREAS
     Dosage: ?          OTHER FREQUENCY:TWICE DAILY M ? F;?
     Route: 048
     Dates: start: 20210216
  5. ONDANSETRON. [Concomitant]
     Active Substance: ONDANSETRON
     Dates: start: 20200929, end: 20201009

REACTIONS (1)
  - Disease progression [None]

NARRATIVE: CASE EVENT DATE: 20210311
